FAERS Safety Report 11166456 (Version 1)
Quarter: 2015Q2

REPORT INFORMATION
  Report Type: Spontaneous
  Country: US (occurrence: US)
  Receive Date: 20150605
  Receipt Date: 20150605
  Transmission Date: 20150821
  Serious: No
  Sender: FDA-Public Use
  Company Number: US-JNJFOC-20150422193

PATIENT
  Sex: Female
  Weight: 74.84 kg

DRUGS (15)
  1. DOXAZOSIN MESILATE [Concomitant]
     Active Substance: DOXAZOSIN MESYLATE
  2. FEXOFENADINE HCL [Concomitant]
     Active Substance: FEXOFENADINE HYDROCHLORIDE
  3. HYDROCHLOROTHIAZIDE. [Concomitant]
     Active Substance: HYDROCHLOROTHIAZIDE
  4. TOPAMAX [Suspect]
     Active Substance: TOPIRAMATE
     Indication: NECK PAIN
     Route: 048
  5. HYDROCODONE BITARTRATE AND ACETAMINOPHEN [Concomitant]
     Active Substance: ACETAMINOPHEN\HYDROCODONE BITARTRATE
     Indication: PAIN
  6. AMITRIPTYLINE [Concomitant]
     Active Substance: AMITRIPTYLINE
  7. VERELAN [Concomitant]
     Active Substance: VERAPAMIL HYDROCHLORIDE
  8. PREVACID [Concomitant]
     Active Substance: LANSOPRAZOLE
  9. BACLOFEN. [Concomitant]
     Active Substance: BACLOFEN
  10. SAVELLA [Concomitant]
     Active Substance: MILNACIPRAN HYDROCHLORIDE
  11. SIMVASTATIN. [Concomitant]
     Active Substance: SIMVASTATIN
  12. CALCIUM [Concomitant]
     Active Substance: CALCIUM
  13. FEMARA [Concomitant]
     Active Substance: LETROZOLE
  14. FENTANYL. [Concomitant]
     Active Substance: FENTANYL
  15. ONDANSETRON HCL [Concomitant]
     Active Substance: ONDANSETRON HYDROCHLORIDE

REACTIONS (2)
  - Product use issue [Unknown]
  - Drug ineffective for unapproved indication [Unknown]
